FAERS Safety Report 21027824 (Version 3)
Quarter: 2022Q3

REPORT INFORMATION
  Report Type: Spontaneous
  Country: US (occurrence: US)
  Receive Date: 20220630
  Receipt Date: 20220825
  Transmission Date: 20221026
  Serious: No
  Sender: FDA-Public Use
  Company Number: US-JNJFOC-20220646696

PATIENT
  Age: 46 Year
  Sex: Male
  Weight: 124.85 kg

DRUGS (6)
  1. SIMPONI [Suspect]
     Active Substance: GOLIMUMAB
     Indication: Psoriatic arthropathy
     Route: 058
  2. SIMPONI [Suspect]
     Active Substance: GOLIMUMAB
     Indication: Psoriasis
  3. VITAMIN B [Concomitant]
     Active Substance: VITAMIN B
     Indication: Psoriatic arthropathy
  4. VITAMIN B [Concomitant]
     Active Substance: VITAMIN B
     Indication: Psoriasis
  5. VITAMIN D NOS [Concomitant]
     Active Substance: VITAMIN D NOS
     Indication: Psoriatic arthropathy
  6. VITAMIN D NOS [Concomitant]
     Active Substance: VITAMIN D NOS
     Indication: Psoriasis

REACTIONS (5)
  - Injection site extravasation [Unknown]
  - Injection site erythema [Unknown]
  - Underdose [Unknown]
  - Device issue [Unknown]
  - Intentional product use issue [Unknown]

NARRATIVE: CASE EVENT DATE: 20220621
